FAERS Safety Report 15959721 (Version 2)
Quarter: 2019Q1

REPORT INFORMATION
  Report Type: Spontaneous
  Country: JP (occurrence: JP)
  Receive Date: 20190214
  Receipt Date: 20190216
  Transmission Date: 20190417
  Serious: Yes (Hospitalization, Other)
  Sender: FDA-Public Use
  Company Number: JP-ROCHE-2261610

PATIENT
  Age: 56 Year
  Sex: Female
  Weight: 55 kg

DRUGS (12)
  1. BUDESONIDE. [Concomitant]
     Active Substance: BUDESONIDE
     Indication: PRODUCT USED FOR UNKNOWN INDICATION
     Route: 065
  2. XOLAIR [Suspect]
     Active Substance: OMALIZUMAB
     Route: 058
     Dates: start: 201511
  3. XOLAIR [Suspect]
     Active Substance: OMALIZUMAB
     Route: 058
     Dates: start: 201701, end: 201707
  4. ZOLPIDEM [Concomitant]
     Active Substance: ZOLPIDEM\ZOLPIDEM TARTRATE
     Indication: PRODUCT USED FOR UNKNOWN INDICATION
     Route: 048
  5. XOLAIR [Suspect]
     Active Substance: OMALIZUMAB
     Route: 058
  6. PREDONINE [Concomitant]
     Active Substance: PREDNISOLONE
     Indication: ASTHMA
     Route: 065
  7. PRANLUKAST [Concomitant]
     Active Substance: PRANLUKAST
     Indication: PRODUCT USED FOR UNKNOWN INDICATION
     Route: 065
  8. XOLAIR [Suspect]
     Active Substance: OMALIZUMAB
     Indication: ASTHMA
     Route: 058
     Dates: start: 201012
  9. PREDONINE [Concomitant]
     Active Substance: PREDNISOLONE
     Dosage: 30 MG, UNK
     Route: 065
  10. ETIZOLAM [Concomitant]
     Active Substance: ETIZOLAM
     Indication: PRODUCT USED FOR UNKNOWN INDICATION
     Route: 065
  11. CARBOCYSTEINE LYSINE [Concomitant]
     Active Substance: CARBOCYSTEINE LYSINE
     Indication: PRODUCT USED FOR UNKNOWN INDICATION
     Route: 065
  12. XOLAIR [Suspect]
     Active Substance: OMALIZUMAB
     Route: 058

REACTIONS (8)
  - Aspergillus infection [Unknown]
  - Pneumonia bacterial [Unknown]
  - Chronic eosinophilic rhinosinusitis [Recovering/Resolving]
  - Cough [Recovering/Resolving]
  - Productive cough [Recovering/Resolving]
  - Asthma [Unknown]
  - Eosinophil count increased [Recovering/Resolving]
  - Drug effect incomplete [Unknown]

NARRATIVE: CASE EVENT DATE: 201111
